FAERS Safety Report 5259506-8 (Version None)
Quarter: 2007Q1

REPORT INFORMATION
  Report Type: 
  Country: None (occurrence: None)
  Receive Date: 20061218
  Receipt Date: 20060929
  Transmission Date: 20070707
  Serious: Yes (Other)
  Sender: FDA-Public Use
  Company Number: 2006PV000028

PATIENT
  Sex: Female

DRUGS (1)
  1. DEPODUR [Suspect]
     Indication: PAIN MANAGEMENT
     Dosage: X1;ED

REACTIONS (3)
  - APNOEA [None]
  - OVERDOSE [None]
  - RESPIRATORY DEPRESSION [None]
